FAERS Safety Report 8348216-6 (Version None)
Quarter: 2012Q2

REPORT INFORMATION
  Report Type: 
  Country: None (occurrence: None)
  Receive Date: 20120509
  Receipt Date: 20120501
  Transmission Date: 20120825
  Serious: Yes (Hospitalization, Other)
  Sender: FDA-Public Use
  Company Number: NL-MEDIMMUNE-MEDI-0014308

PATIENT
  Sex: Female
  Weight: 3.18 kg

DRUGS (5)
  1. ELECTROLYTE DRINK [Concomitant]
     Dates: start: 20110101
  2. FERROFUMARATE 20=1 PCH [Concomitant]
     Dates: start: 20110101
  3. SYNAGIS [Suspect]
     Route: 030
     Dates: start: 20111222, end: 20111222
  4. LACTULOSE [Concomitant]
     Dates: start: 20110101
  5. SYNAGIS [Suspect]
     Indication: PREMATURE BABY
     Route: 030
     Dates: start: 20111122, end: 20111122

REACTIONS (4)
  - CRYING [None]
  - INGUINAL HERNIA [None]
  - PAIN [None]
  - FRACTURE [None]
